FAERS Safety Report 7917625-9 (Version None)
Quarter: 2011Q4

REPORT INFORMATION
  Report Type: 
  Country: None (occurrence: None)
  Receive Date: 20111116
  Receipt Date: 20111104
  Transmission Date: 20120403
  Serious: Yes (Hospitalization)
  Sender: FDA-Public Use
  Company Number: GB-ELI_LILLY_AND_COMPANY-GB201110003838

PATIENT
  Age: 32 Year
  Sex: Female

DRUGS (5)
  1. DULOXETINE HYDROCHLORIDE [Suspect]
     Indication: DEPRESSED MOOD
     Dosage: 60 MG, QD
     Route: 048
     Dates: start: 20110906, end: 20110915
  2. CITALOPRAM HYDROBROMIDE [Concomitant]
     Dosage: 20 MG, UNK
  3. QUETIAPINE [Concomitant]
     Dosage: UNK, UNKNOWN
  4. RISPERIDONE [Concomitant]
     Dosage: UNK, UNKNOWN
  5. QUETIAPINE [Concomitant]
     Dosage: 600 MG, QD

REACTIONS (3)
  - PSYCHOTIC DISORDER [None]
  - ABNORMAL DREAMS [None]
  - DEPRESSION [None]
